FAERS Safety Report 9744839 (Version 2)
Quarter: 2015Q1

REPORT INFORMATION
  Report Type: Report from Study
  Country: CA (occurrence: CA)
  Receive Date: 20131211
  Receipt Date: 20150203
  Transmission Date: 20150721
  Serious: Yes (Other)
  Sender: FDA-Public Use
  Company Number: CA-ROCHE-1316895

PATIENT
  Sex: Female

DRUGS (13)
  1. COENZYME Q-10 [Concomitant]
  2. RITUXAN [Suspect]
     Active Substance: RITUXIMAB
     Indication: RHEUMATOID ARTHRITIS
     Dosage: FREQUENCY: DAY 1, 15, LAST DOSE ON 26/FEB/2013
     Route: 042
     Dates: start: 20120124
  3. ESTRADIOL. [Concomitant]
     Active Substance: ESTRADIOL
     Route: 065
  4. ELAVIL [Concomitant]
     Active Substance: AMITRIPTYLINE HYDROCHLORIDE
     Route: 065
  5. FOLIC ACID. [Concomitant]
     Active Substance: FOLIC ACID
  6. METHYLPREDNISOLONE. [Concomitant]
     Active Substance: METHYLPREDNISOLONE
     Indication: PREMEDICATION
     Route: 042
     Dates: start: 20120124
  7. METHOTREXATE (METHOTREXATE SODIUM) [Concomitant]
     Active Substance: METHOTREXATE SODIUM
     Route: 048
  8. DICLOFENAC [Concomitant]
     Active Substance: DICLOFENAC
     Route: 065
  9. CRESTOR [Concomitant]
     Active Substance: ROSUVASTATIN CALCIUM
     Route: 065
  10. DIPHENHYDRAMINE HCL [Concomitant]
     Active Substance: DIPHENHYDRAMINE HYDROCHLORIDE
     Indication: PREMEDICATION
     Route: 048
     Dates: start: 20120124
  11. COVERSYL [Concomitant]
     Active Substance: PERINDOPRIL
     Route: 065
  12. ACETAMINOPHEN. [Concomitant]
     Active Substance: ACETAMINOPHEN
     Indication: PREMEDICATION
     Route: 048
     Dates: start: 20120124
  13. NEXIUM [Concomitant]
     Active Substance: ESOMEPRAZOLE MAGNESIUM
     Route: 065

REACTIONS (2)
  - Ovarian cyst [Unknown]
  - Benign ovarian tumour [Recovered/Resolved]
